FAERS Safety Report 12676047 (Version 1)
Quarter: 2016Q3

REPORT INFORMATION
  Report Type: Spontaneous
  Country: DE (occurrence: DE)
  Receive Date: 20160823
  Receipt Date: 20160823
  Transmission Date: 20161109
  Serious: Yes (Other)
  Sender: FDA-Public Use
  Company Number: DE-AUROBINDO-AUR-APL-2016-10408

PATIENT
  Sex: Female
  Weight: 4.2 kg

DRUGS (3)
  1. LAMICTAL [Suspect]
     Active Substance: LAMOTRIGINE
     Indication: EPILEPSY
     Dosage: 50 MG, TWO TIMES A DAY
     Route: 063
  2. LEVETIRACETAM. [Suspect]
     Active Substance: LEVETIRACETAM
     Dosage: 2250 MG, TWO TIMES A DAY
     Route: 063
  3. LEVETIRACETAM. [Suspect]
     Active Substance: LEVETIRACETAM
     Indication: EPILEPSY
     Dosage: 2000 MG, TWO TIMES A DAY
     Route: 063

REACTIONS (6)
  - Selective eating disorder [Not Recovered/Not Resolved]
  - Urinary tract infection [Unknown]
  - Weight gain poor [Unknown]
  - Gastrooesophageal reflux disease [Not Recovered/Not Resolved]
  - Dehydration [Recovered/Resolved]
  - Exposure during breast feeding [Unknown]
